FAERS Safety Report 12218695 (Version 2)
Quarter: 2016Q2

REPORT INFORMATION
  Report Type: Spontaneous
  Country: AE (occurrence: AE)
  Receive Date: 20160329
  Receipt Date: 20160411
  Transmission Date: 20160815
  Serious: Yes (Other)
  Sender: FDA-Public Use
  Company Number: AE-B.I. PHARMACEUTICALS,INC./RIDGEFIELD-2016-BI-18328AE

PATIENT
  Age: 70 Year
  Sex: Male

DRUGS (2)
  1. GILOTRIF [Suspect]
     Active Substance: AFATINIB
     Indication: NON-SMALL CELL LUNG CANCER
     Dosage: 40 MG
     Route: 048
  2. GILOTRIF [Suspect]
     Active Substance: AFATINIB
     Indication: EGFR GENE MUTATION

REACTIONS (3)
  - Mucosal inflammation [Unknown]
  - Rash [Unknown]
  - Deafness [Unknown]
